FAERS Safety Report 5810233-5 (Version None)
Quarter: 2008Q3

REPORT INFORMATION
  Report Type: 
  Country: None (occurrence: None)
  Receive Date: 20080715
  Receipt Date: 20071220
  Transmission Date: 20090109
  Serious: No
  Sender: FDA-Public Use
  Company Number: A0699995A

PATIENT
  Age: 41 Year
  Sex: Female

DRUGS (6)
  1. IMITREX [Suspect]
     Indication: MIGRAINE
     Dosage: 25MG AS REQUIRED
     Route: 048
     Dates: start: 20071205, end: 20071218
  2. MIDRIN [Concomitant]
  3. ULTRAM [Concomitant]
  4. BLUTAL [Concomitant]
  5. ACETAN [Concomitant]
  6. CODEINE SUL TAB [Concomitant]

REACTIONS (2)
  - FLUID RETENTION [None]
  - RASH [None]
